FAERS Safety Report 5993547-8 (Version None)
Quarter: 2008Q4

REPORT INFORMATION
  Report Type: 
  Country: None (occurrence: None)
  Receive Date: 20081212
  Receipt Date: 20081203
  Transmission Date: 20090506
  Serious: Yes (Other)
  Sender: FDA-Public Use
  Company Number: PHHY2008ES30670

PATIENT
  Age: 13 Year
  Sex: Female

DRUGS (3)
  1. TRILEPTAL [Suspect]
     Indication: EPILEPSY
     Dosage: UNK
     Route: 048
     Dates: start: 20081120
  2. TRILEPTAL [Suspect]
     Dosage: 600 MG, BID
  3. TRILEPTAL [Suspect]
     Dosage: 300 MG OD

REACTIONS (1)
  - DYSKINESIA [None]
